FAERS Safety Report 7213594-8 (Version None)
Quarter: 2011Q1

REPORT INFORMATION
  Report Type: 
  Country: None (occurrence: None)
  Receive Date: 20110106
  Receipt Date: 20101230
  Transmission Date: 20110831
  Serious: Yes (Life-Threatening)
  Sender: FDA-Public Use
  Company Number: GB-PURDUE-GBR-2010-0007553

PATIENT
  Age: 24 Year
  Sex: Female
  Weight: 110 kg

DRUGS (4)
  1. AMOXICILLIN [Concomitant]
  2. ASPIRIN [Concomitant]
  3. PARACETAMOL [Concomitant]
  4. THEOPHYLLINE [Suspect]
     Indication: PRODUCT USED FOR UNKNOWN INDICATION
     Dosage: UNK
     Route: 065
     Dates: start: 20101216

REACTIONS (1)
  - SWELLING [None]
